FAERS Safety Report 6920058-5 (Version None)
Quarter: 2010Q3

REPORT INFORMATION
  Report Type: 
  Country: None (occurrence: None)
  Receive Date: 20100811
  Receipt Date: 20100730
  Transmission Date: 20110219
  Serious: Yes (Other)
  Sender: FDA-Public Use
  Company Number: US-PFIZER INC-2010096169

PATIENT
  Sex: Female
  Weight: 57.6 kg

DRUGS (3)
  1. LYRICA [Suspect]
     Indication: NERVE INJURY
     Dosage: 25 MG IN MORNING, 50 MG AT NIGHT
     Route: 048
     Dates: start: 20070101
  2. LYRICA [Suspect]
     Dosage: 50 MG, 2X/DAY
  3. GALENIC /PHENTERMINE/FENFLURAMINE/ [Suspect]
     Indication: WEIGHT INCREASED
     Dosage: UNK

REACTIONS (5)
  - CYSTITIS [None]
  - DRUG INEFFECTIVE [None]
  - FATIGUE [None]
  - RASH [None]
  - WEIGHT INCREASED [None]
